FAERS Safety Report 6159213-3 (Version None)
Quarter: 2009Q2

REPORT INFORMATION
  Report Type: 
  Country: None (occurrence: None)
  Receive Date: 20090414
  Receipt Date: 20090401
  Transmission Date: 20091009
  Serious: Yes (Other)
  Sender: FDA-Public Use
  Company Number: 2009EN000129

PATIENT
  Age: 48 Year
  Sex: Male

DRUGS (13)
  1. ABELCET [Suspect]
     Indication: SEPSIS
     Dosage: 450 MG; QD; IV
     Route: 042
     Dates: start: 20090308
  2. OMEPRAZOLE [Concomitant]
  3. CLEXANE [Concomitant]
  4. PABRINEX [Concomitant]
  5. HYDROCORTISONE [Concomitant]
  6. TAZOCIN [Concomitant]
  7. VANCOMYCIN HCL [Concomitant]
  8. PROPOFOL [Concomitant]
  9. FENTANYL [Concomitant]
  10. GENTAMYCIN-MP [Concomitant]
  11. HEPARIN [Concomitant]
  12. INSULIN [Concomitant]
  13. NORADRENALINE [Concomitant]

REACTIONS (3)
  - BLOOD PRESSURE DECREASED [None]
  - CHILLS [None]
  - TACHYCARDIA [None]
